FAERS Safety Report 19972848 (Version 1)
Quarter: 2021Q4

REPORT INFORMATION
  Report Type: Spontaneous
  Country: US (occurrence: US)
  Receive Date: 20211019
  Receipt Date: 20211019
  Transmission Date: 20220304
  Serious: No
  Sender: FDA-Public Use
  Company Number: None

PATIENT
  Age: 74 Year
  Sex: Female
  Weight: 67.5 kg

DRUGS (19)
  1. EXEMESTANE [Suspect]
     Active Substance: EXEMESTANE
     Indication: Breast cancer
     Route: 048
     Dates: start: 20210126, end: 20211019
  2. DIPHENHYDRAMINE HYDROCHLORIDE\LIDOCAINE HYDROCHLORIDE\NYSTATIN [Concomitant]
     Active Substance: DIPHENHYDRAMINE HYDROCHLORIDE\LIDOCAINE HYDROCHLORIDE\NYSTATIN
  3. XGEVA [Concomitant]
     Active Substance: DENOSUMAB
  4. Dexamethasone 0.5mg/5mL [Concomitant]
  5. METFORMIN HYDROCHLORIDE [Concomitant]
     Active Substance: METFORMIN HYDROCHLORIDE
  6. Methimazole 5mg [Concomitant]
  7. METOPROLOL TARTRATE [Concomitant]
     Active Substance: METOPROLOL TARTRATE
  8. MONTELUKAST SODIUM [Concomitant]
     Active Substance: MONTELUKAST SODIUM
  9. Multivitamin Adult [Concomitant]
  10. ONDANSETRON [Concomitant]
     Active Substance: ONDANSETRON
  11. PANTOPRAZOLE SODIUM [Concomitant]
     Active Substance: PANTOPRAZOLE SODIUM
  12. Miralax Mix-In Pax 17gm [Concomitant]
  13. MICARDIS [Concomitant]
     Active Substance: TELMISARTAN
  14. TRAZODONE [Concomitant]
     Active Substance: TRAZODONE HYDROCHLORIDE
  15. Nystatin 100000 unit/mL [Concomitant]
  16. Biotin Maximum Strength 10000mcg [Concomitant]
  17. Flinstones Gummies Omega-3 DHA [Concomitant]
  18. Zinc 100mg [Concomitant]
  19. DRONABINOL [Concomitant]
     Active Substance: DRONABINOL

REACTIONS (1)
  - Hospice care [None]

NARRATIVE: CASE EVENT DATE: 20211019
